FAERS Safety Report 13593755 (Version 1)
Quarter: 2017Q2

REPORT INFORMATION
  Report Type: Spontaneous
  Country: US (occurrence: US)
  Receive Date: 20170530
  Receipt Date: 20170530
  Transmission Date: 20170830
  Serious: No
  Sender: FDA-Public Use
  Company Number: US-009507513-1705USA014012

PATIENT
  Age: 19 Year
  Sex: Female

DRUGS (1)
  1. NEXPLANON [Suspect]
     Active Substance: ETONOGESTREL
     Indication: CONTRACEPTION
     Dosage: 68 MG (1 IMPLANT), EVERY THREE YEARS
     Route: 059
     Dates: start: 20170325

REACTIONS (2)
  - Increased appetite [Not Recovered/Not Resolved]
  - Menstruation normal [Not Recovered/Not Resolved]

NARRATIVE: CASE EVENT DATE: 2017
